FAERS Safety Report 8579843-9 (Version None)
Quarter: 2012Q3

REPORT INFORMATION
  Report Type: 
  Country: None (occurrence: None)
  Receive Date: 20120808
  Receipt Date: 20120730
  Transmission Date: 20120928
  Serious: Yes (Hospitalization)
  Sender: FDA-Public Use
  Company Number: DK-ELI_LILLY_AND_COMPANY-DK201206007332

PATIENT
  Sex: Male
  Weight: 88 kg

DRUGS (7)
  1. ASPIRIN [Concomitant]
     Dosage: 75 MG, QD
  2. IMDUR [Concomitant]
     Dosage: 30 MG, QD
  3. METOPROLOL SUCCINATE [Concomitant]
     Dosage: 50 MG, QD
  4. ENALAPRIL MALEATE [Concomitant]
     Dosage: 5 MG, QD
  5. PRASUGREL HYDROCHLORIDE [Suspect]
     Dosage: 10 MG, UNK
  6. LIPITOR [Concomitant]
     Dosage: 40 MG, QD
  7. PRASUGREL HYDROCHLORIDE [Suspect]
     Indication: STENT PLACEMENT
     Dosage: 60 MG, SINGLE
     Dates: start: 20111019

REACTIONS (1)
  - IN-STENT CORONARY ARTERY RESTENOSIS [None]
